FAERS Safety Report 15985494 (Version 1)
Quarter: 2019Q1

REPORT INFORMATION
  Report Type: Spontaneous
  Country: US (occurrence: US)
  Receive Date: 20190220
  Receipt Date: 20190220
  Transmission Date: 20190418
  Serious: No
  Sender: FDA-Public Use
  Company Number: US-LANTHEUS-LMI-2018-00002

PATIENT
  Age: 45 Year
  Sex: Female
  Weight: 129 kg

DRUGS (1)
  1. DEFINITY [Suspect]
     Active Substance: PERFLUTREN
     Indication: ECHOCARDIOGRAM
     Dosage: 3.5 ML (1.3 ML DEFINITY PREPARED IN 8.7 ML DILUENT)
     Route: 040
     Dates: start: 20171229, end: 20171229

REACTIONS (9)
  - Dizziness [Recovered/Resolved]
  - Urticaria [Recovered/Resolved]
  - Pruritus [Recovered/Resolved]
  - Blood pressure decreased [Recovered/Resolved]
  - Throat irritation [Recovered/Resolved]
  - Pallor [Recovered/Resolved]
  - Hyperhidrosis [Recovered/Resolved]
  - Erythema [Recovered/Resolved]
  - Eye swelling [Recovered/Resolved]

NARRATIVE: CASE EVENT DATE: 20171229
